FAERS Safety Report 4535978-9 (Version None)
Quarter: 2004Q4

REPORT INFORMATION
  Report Type: 
  Country: None (occurrence: None)
  Receive Date: 20041216
  Receipt Date: 20040603
  Transmission Date: 20050328
  Serious: Yes (Other)
  Sender: FDA-Public Use
  Company Number: HQWYE258904JUN04

PATIENT
  Sex: Male

DRUGS (2)
  1. EFFEXOR XR [Suspect]
     Indication: DEPRESSION
     Dosage: 75 MG 1X PER 1 DAY, ORAL
     Route: 048
     Dates: start: 20031201
  2. VIAGRA [Concomitant]

REACTIONS (3)
  - EPINEPHRINE INCREASED [None]
  - HYPERTENSION [None]
  - NOREPINEPHRINE INCREASED [None]
